FAERS Safety Report 4980961-2 (Version None)
Quarter: 2006Q2

REPORT INFORMATION
  Report Type: 
  Country: None (occurrence: None)
  Receive Date: 20060424
  Receipt Date: 20050829
  Transmission Date: 20061013
  Serious: Yes (Disabling, Other)
  Sender: FDA-Public Use
  Company Number: US-MERCK-0508USA05102

PATIENT
  Age: 60 Year
  Sex: Male
  Weight: 76 kg

DRUGS (2)
  1. VIOXX [Suspect]
     Indication: ARTHRITIS
     Route: 048
     Dates: start: 20030101, end: 20040901
  2. TYLENOL (CAPLET) [Concomitant]
     Route: 065

REACTIONS (17)
  - ANXIETY [None]
  - BACK PAIN [None]
  - CEREBRAL INFARCTION [None]
  - CEREBROVASCULAR ACCIDENT [None]
  - COMPRESSION FRACTURE [None]
  - DIARRHOEA [None]
  - DYSPNOEA [None]
  - ESSENTIAL HYPERTENSION [None]
  - INFARCTION [None]
  - NAUSEA [None]
  - PULMONARY GRANULOMA [None]
  - RALES [None]
  - SHOULDER PAIN [None]
  - SPINAL COMPRESSION FRACTURE [None]
  - SPINAL DEFORMITY [None]
  - UPPER RESPIRATORY TRACT INFECTION [None]
  - VOMITING [None]
